FAERS Safety Report 4534621-2 (Version None)
Quarter: 2004Q4

REPORT INFORMATION
  Report Type: 
  Country: None (occurrence: None)
  Receive Date: 20041222
  Receipt Date: 20041213
  Transmission Date: 20050328
  Serious: Yes (Hospitalization, Other)
  Sender: FDA-Public Use
  Company Number: US-ABBOTT-04P-163-0283030-00

PATIENT
  Sex: Female
  Weight: 78.088 kg

DRUGS (11)
  1. HUMIRA [Suspect]
     Indication: RHEUMATOID ARTHRITIS
     Route: 058
     Dates: start: 20040708, end: 20041201
  2. METHOTREXATE SODIUM [Concomitant]
     Indication: RHEUMATOID ARTHRITIS
     Route: 048
     Dates: start: 20040708, end: 20041201
  3. VICODIN [Concomitant]
     Indication: RHEUMATOID ARTHRITIS
     Route: 048
  4. ATENOLOL [Concomitant]
     Indication: BLOOD PRESSURE INCREASED
     Route: 048
  5. GEMFIBROZIL [Concomitant]
     Indication: BLOOD CHOLESTEROL INCREASED
     Route: 048
  6. ESOMEPRAZOLE [Concomitant]
     Indication: GASTRIC DISORDER
     Route: 048
  7. IRON [Concomitant]
     Indication: ANAEMIA
     Route: 048
  8. VITAMIN B COMPLEX CAP [Concomitant]
     Indication: ANAEMIA
     Route: 048
  9. ASCORBIC ACID [Concomitant]
     Indication: ANAEMIA
     Route: 048
  10. CALCIUM [Concomitant]
     Indication: OSTEOPOROSIS
     Route: 048
  11. CALCIUM [Concomitant]
     Indication: OSTEOARTHRITIS

REACTIONS (13)
  - CYSTITIS [None]
  - DIARRHOEA [None]
  - FULL BLOOD COUNT DECREASED [None]
  - HAEMOGLOBIN DECREASED [None]
  - HYPOXIA [None]
  - INJECTION SITE URTICARIA [None]
  - LABORATORY TEST ABNORMAL [None]
  - NAUSEA [None]
  - OEDEMA PERIPHERAL [None]
  - PNEUMONIA [None]
  - SINUSITIS [None]
  - STOMACH DISCOMFORT [None]
  - WEIGHT DECREASED [None]
